FAERS Safety Report 19702409 (Version 5)
Quarter: 2022Q4

REPORT INFORMATION
  Report Type: Report from Study
  Country: US (occurrence: US)
  Receive Date: 20210815
  Receipt Date: 20221117
  Transmission Date: 20230113
  Serious: Yes (Hospitalization, Other)
  Sender: FDA-Public Use
  Company Number: NVSC2021US180113

PATIENT
  Sex: Female

DRUGS (1)
  1. COSENTYX [Suspect]
     Active Substance: SECUKINUMAB
     Indication: Psoriasis
     Dosage: 300 MG, QMO (BENEATH THE SKIN, USUALLY VIA INJECTION) (ONE SINGLE DOSE)
     Route: 058

REACTIONS (4)
  - COVID-19 pneumonia [Recovering/Resolving]
  - Dyspnoea [Recovering/Resolving]
  - Cerebrovascular accident [Recovered/Resolved]
  - Skin disorder [Unknown]
